FAERS Safety Report 6135167-0 (Version None)
Quarter: 2009Q1

REPORT INFORMATION
  Report Type: 
  Country: None (occurrence: None)
  Receive Date: 20090325
  Receipt Date: 20090308
  Transmission Date: 20090719
  Serious: Yes (Hospitalization)
  Sender: FDA-Public Use
  Company Number: 2006S1003036

PATIENT
  Age: 38 Year
  Sex: Female
  Weight: 64.4108 kg

DRUGS (20)
  1. PHOSPHOSODA GINGER LEMON [Suspect]
     Indication: COLONOSCOPY
     Dosage: 90 ML;TOTAL;PO
     Route: 048
     Dates: start: 20040525, end: 20040526
  2. PERCOCET [Concomitant]
  3. VISTARIL [Concomitant]
  4. AUGMENTIN '125' [Concomitant]
  5. PREMARIN [Concomitant]
  6. ZOCOR [Concomitant]
  7. PROZAC [Concomitant]
  8. BENTYL [Concomitant]
  9. PREVACID [Concomitant]
  10. ELAVIL [Concomitant]
  11. PROPULSID [Concomitant]
  12. LASIX [Concomitant]
  13. AMBIEN [Concomitant]
  14. VIOXX [Concomitant]
  15. PRILOSEC [Concomitant]
  16. VICODIN [Concomitant]
  17. LOPERAMIDE HCL [Concomitant]
  18. TRICOR [Concomitant]
  19. LOTREL [Concomitant]
  20. HYDROCHLOROTHIAZIDE [Concomitant]

REACTIONS (16)
  - ANAEMIA [None]
  - ARTHRALGIA [None]
  - CARCINOID SYNDROME [None]
  - DIARRHOEA [None]
  - DIZZINESS [None]
  - EATING DISORDER [None]
  - HYPERTENSION [None]
  - HYPOKALAEMIA [None]
  - HYPOVOLAEMIA [None]
  - MALAISE [None]
  - NAUSEA [None]
  - NEPHROPATHY [None]
  - RENAL FAILURE ACUTE [None]
  - RENAL FAILURE CHRONIC [None]
  - RENAL TUBULAR NECROSIS [None]
  - VOMITING [None]
